FAERS Safety Report 4367891-4 (Version None)
Quarter: 2004Q2

REPORT INFORMATION
  Report Type: 
  Country: None (occurrence: None)
  Receive Date: 20040601
  Receipt Date: 20040601
  Transmission Date: 20050107
  Serious: Yes (Death)
  Sender: FDA-Public Use
  Company Number: None

PATIENT
  Age: 47 Year
  Sex: Female
  Weight: 68.0396 kg

DRUGS (1)
  1. OMNIPAQUE 300 [Suspect]
     Indication: SPINAL MYELOGRAM
     Dosage: 10 ML ONE TIME INTRATHECAL
     Route: 037

REACTIONS (3)
  - GRAND MAL CONVULSION [None]
  - HYPERSENSITIVITY [None]
  - MULTI-ORGAN FAILURE [None]
